FAERS Safety Report 8956778 (Version 1)
Quarter: 2012Q4

REPORT INFORMATION
  Report Type: 
  Country: US (occurrence: US)
  Receive Date: 20121210
  Receipt Date: 20121210
  Transmission Date: 20130627
  Serious: Yes (Other)
  Sender: FDA-Public Use
  Company Number: CHPA2012US024589

PATIENT
  Age: 70 Year
  Sex: Male

DRUGS (1)
  1. THERAFLU DAYTIME [Suspect]
     Indication: NASOPHARYNGITIS
     Dosage: 1 DF, Unk
     Route: 048
     Dates: end: 20121126

REACTIONS (3)
  - Atrioventricular block [Recovered/Resolved]
  - Nasopharyngitis [Recovered/Resolved]
  - Expired drug administered [Unknown]
